FAERS Safety Report 5371930-1 (Version None)
Quarter: 2007Q2

REPORT INFORMATION
  Report Type: 
  Country: None (occurrence: None)
  Receive Date: 20070627
  Receipt Date: 20070501
  Transmission Date: 20071010
  Serious: Yes (Other)
  Sender: FDA-Public Use
  Company Number: US-PURDUE-USA_2007_0027626

PATIENT
  Sex: Female
  Weight: 75 kg

DRUGS (2)
  1. OXYCONTIN [Suspect]
     Indication: BACK PAIN
     Dosage: 20 MG, TID
     Dates: start: 20001122, end: 20040917
  2. TYLENOL [Concomitant]
     Indication: HEADACHE

REACTIONS (14)
  - AGGRESSION [None]
  - CONFUSIONAL STATE [None]
  - DEPRESSION [None]
  - DRUG DEPENDENCE [None]
  - FEELING ABNORMAL [None]
  - HEADACHE [None]
  - INSOMNIA [None]
  - LOSS OF CONSCIOUSNESS [None]
  - MOOD SWINGS [None]
  - PAIN [None]
  - PALLOR [None]
  - PARANOIA [None]
  - PERSECUTORY DELUSION [None]
  - SYNCOPE [None]
